FAERS Safety Report 6197087-5 (Version None)
Quarter: 2009Q2

REPORT INFORMATION
  Report Type: 
  Country: None (occurrence: None)
  Receive Date: 20090518
  Receipt Date: 20090518
  Transmission Date: 20091009
  Serious: Yes (Hospitalization)
  Sender: FDA-Public Use
  Company Number: None

PATIENT
  Age: 27 Year
  Sex: Female
  Weight: 87.7 kg

DRUGS (7)
  1. GABAPENTIN [Suspect]
     Indication: NEURALGIA
     Dosage: GABAPENTIN 300MG TID PO
     Route: 048
     Dates: start: 20090427
  2. RISPERDAL [Concomitant]
  3. BENZTROPINE [Concomitant]
  4. ATIVAN [Concomitant]
  5. HALOPERIDOL [Concomitant]
  6. HALOPERIDOL [Concomitant]
  7. NAPROXEN [Concomitant]

REACTIONS (4)
  - PURPURA [None]
  - RASH [None]
  - RASH MACULO-PAPULAR [None]
  - URTICARIA [None]
